FAERS Safety Report 8545099-6 (Version None)
Quarter: 2012Q3

REPORT INFORMATION
  Report Type: 
  Country: None (occurrence: None)
  Receive Date: 20120727
  Receipt Date: 20120718
  Transmission Date: 20120928
  Serious: Yes (Other)
  Sender: FDA-Public Use
  Company Number: US-ASTRAZENECA-2012SE18603

PATIENT
  Age: 59 Year
  Sex: Female

DRUGS (4)
  1. PROTONIX [Concomitant]
  2. NEXIUM [Suspect]
     Route: 048
  3. OTHERS [Concomitant]
  4. PRILOSEC [Suspect]
     Route: 048

REACTIONS (3)
  - CEREBROVASCULAR ACCIDENT [None]
  - MYOCARDIAL INFARCTION [None]
  - OESOPHAGEAL ULCER [None]
